FAERS Safety Report 5255504-9 (Version None)
Quarter: 2007Q1

REPORT INFORMATION
  Report Type: 
  Country: None (occurrence: None)
  Receive Date: 20070305
  Receipt Date: 20070221
  Transmission Date: 20070707
  Serious: Yes (Life-Threatening)
  Sender: FDA-Public Use
  Company Number: US-KINGPHARMUSA00001-K200700203

PATIENT

DRUGS (9)
  1. ALTACE [Suspect]
     Dosage: 10 MG, QD
     Route: 048
  2. INVESTIGATIONAL DRUG [Suspect]
     Indication: METASTATIC MALIGNANT MELANOMA
     Dosage: 45 MG, QD
     Route: 048
     Dates: start: 20061116, end: 20061206
  3. ADALAT [Suspect]
     Dosage: 60 MG, QD
     Route: 048
  4. INDAPAMIDE [Suspect]
     Dosage: 2.5 MG, QD
     Route: 048
  5. METOPROLOL SUCCINATE [Suspect]
     Dosage: 100 MG, QD
     Route: 048
  6. ENTERIC ASPIRIN [Concomitant]
     Dosage: 81 MG, UNK
     Route: 048
  7. GLYBURIDE [Concomitant]
     Dosage: 5 MG, UNK
     Route: 048
  8. LIPITOR [Concomitant]
     Dosage: 40 MG, UNK
     Route: 048
  9. METFORMIN HCL [Concomitant]
     Dosage: 500 MG, UNK
     Route: 048

REACTIONS (1)
  - HYPERTENSION [None]
